FAERS Safety Report 10056099 (Version 2)
Quarter: 2014Q2

REPORT INFORMATION
  Report Type: Spontaneous
  Country: JP (occurrence: None)
  Receive Date: 20140401
  Receipt Date: 20140416
  Transmission Date: 20141212
  Serious: Yes (Other)
  Sender: FDA-Public Use
  Company Number: VAL_03051_2014

PATIENT
  Sex: 0

DRUGS (1)
  1. PARLODEL [Suspect]
     Indication: PARKINSON^S DISEASE
     Dosage: (DF ORAL)
     Route: 048

REACTIONS (1)
  - Breast cancer [None]
